FAERS Safety Report 7658442-7 (Version None)
Quarter: 2011Q3

REPORT INFORMATION
  Report Type: 
  Country: None (occurrence: None)
  Receive Date: 20110805
  Receipt Date: 20110103
  Transmission Date: 20111222
  Serious: No
  Sender: FDA-Public Use
  Company Number: US-ENDO PHARMACEUTICALS INC.-CLOZ20110012

PATIENT
  Sex: Male
  Weight: 77.18 kg

DRUGS (6)
  1. PAXIL [Suspect]
     Indication: DEPRESSION
     Route: 048
     Dates: start: 20080101
  2. PROTONIX [Suspect]
     Indication: GASTROOESOPHAGEAL REFLUX DISEASE
     Route: 048
     Dates: start: 19900101
  3. CLONAZEPAM [Suspect]
     Indication: ANXIETY
     Dosage: 0.5 MG
     Route: 048
     Dates: start: 20100501
  4. TAMSULOSIN HCL [Suspect]
     Indication: PROPHYLAXIS
     Dosage: 0.4 MG
     Route: 048
     Dates: start: 20090101
  5. FENTANYL [Suspect]
     Indication: PAIN
     Dosage: 1 PATCH
     Route: 062
     Dates: start: 20080101
  6. BUPROPION HCL [Suspect]
     Indication: DEPRESSION
     Dosage: 75 MG
     Route: 048
     Dates: start: 20080101, end: 20100820

REACTIONS (3)
  - RESPIRATORY ARREST [None]
  - CONVULSION [None]
  - UNRESPONSIVE TO STIMULI [None]
